FAERS Safety Report 23682817 (Version 1)
Quarter: 2024Q1

REPORT INFORMATION
  Report Type: Spontaneous
  Country: FR (occurrence: FR)
  Receive Date: 20240328
  Receipt Date: 20240328
  Transmission Date: 20240409
  Serious: Yes (Other)
  Sender: FDA-Public Use
  Company Number: None

PATIENT
  Age: 67 Year
  Sex: Male
  Weight: 77 kg

DRUGS (41)
  1. OLANZAPINE [Suspect]
     Active Substance: OLANZAPINE
     Indication: Prophylaxis of nausea and vomiting
     Route: 048
     Dates: start: 20240212, end: 20240213
  2. IFOSFAMIDE [Suspect]
     Active Substance: IFOSFAMIDE
     Indication: Liposarcoma
     Dosage: C1D1 AND D2, D3 ON 13/11/2023: 40 MG DOXORUBICIN AND IFOSFAMIDE 4900 MG
     Route: 042
     Dates: start: 20231113
  3. IFOSFAMIDE [Suspect]
     Active Substance: IFOSFAMIDE
     Indication: Encephalopathy
     Dosage: C1D1 AND D2, D3 ON 13/11/2023: 40 MG DOXORUBICIN AND IFOSFAMIDE 4900 MG
     Route: 042
     Dates: start: 20231113
  4. IFOSFAMIDE [Suspect]
     Active Substance: IFOSFAMIDE
     Indication: Liposarcoma
     Dosage: C2D1 AND D2, D3 ON 04/12/2023: 40 MG DOXORUBICIN AND IFOSFAMIDE 5300 MG
     Route: 042
     Dates: start: 20231204
  5. IFOSFAMIDE [Suspect]
     Active Substance: IFOSFAMIDE
     Indication: Encephalopathy
     Dosage: C2D1 AND D2, D3 ON 04/12/2023: 40 MG DOXORUBICIN AND IFOSFAMIDE 5300 MG
     Route: 042
     Dates: start: 20231204
  6. IFOSFAMIDE [Suspect]
     Active Substance: IFOSFAMIDE
     Indication: Liposarcoma
     Dosage: C3D1 AND D2, D3 ON 26/12/2023: 40 MG DOXORUBICIN AND IFOSFAMIDE 5300 MG
     Route: 042
     Dates: start: 20231226
  7. IFOSFAMIDE [Suspect]
     Active Substance: IFOSFAMIDE
     Indication: Encephalopathy
     Dosage: C3D1 AND D2, D3 ON 26/12/2023: 40 MG DOXORUBICIN AND IFOSFAMIDE 5300 MG
     Route: 042
     Dates: start: 20231226
  8. IFOSFAMIDE [Suspect]
     Active Substance: IFOSFAMIDE
     Indication: Liposarcoma
     Dosage: C4D1 AND D2, D3 ON 22/01/2024: 40 MG DOXORUBICIN AND IFOSFAMIDE 3900 MG
     Route: 042
     Dates: start: 20240122
  9. IFOSFAMIDE [Suspect]
     Active Substance: IFOSFAMIDE
     Indication: Encephalopathy
     Dosage: C4D1 AND D2, D3 ON 22/01/2024: 40 MG DOXORUBICIN AND IFOSFAMIDE 3900 MG
     Route: 042
     Dates: start: 20240122
  10. IFOSFAMIDE [Suspect]
     Active Substance: IFOSFAMIDE
     Indication: Liposarcoma
     Dosage: LYOPHILISAT POUR SOLUTION INJECTABLE .?C5D1 AND D2 (NO D3) ON 12/02/2024: 30 MG DOXORUBICIN AND ...
     Route: 042
     Dates: start: 20240212, end: 20240213
  11. IFOSFAMIDE [Suspect]
     Active Substance: IFOSFAMIDE
     Indication: Encephalopathy
     Dosage: LYOPHILISAT POUR SOLUTION INJECTABLE .?C5D1 AND D2 (NO D3) ON 12/02/2024: 30 MG DOXORUBICIN AND ...
     Route: 042
     Dates: start: 20240212, end: 20240213
  12. ALIZAPRIDE [Suspect]
     Active Substance: ALIZAPRIDE
     Dates: start: 20240212, end: 20240213
  13. LOVENOX [Suspect]
     Active Substance: ENOXAPARIN SODIUM
     Indication: Thrombosis prophylaxis
     Dosage: 4,000 ANTI-XA IU/0.4 ML, SOLUTION FOR INJECTION IN CARTRIDGE
     Route: 058
     Dates: start: 20240212, end: 20240213
  14. METHYLPREDNISOLONE ACETATE [Suspect]
     Active Substance: METHYLPREDNISOLONE ACETATE
     Indication: Chemotherapy side effect prophylaxis
     Dosage: DAILY DOSE: 60 MILLIGRAM
     Route: 048
     Dates: start: 20240212, end: 20240213
  15. ADRIAMYCIN [Suspect]
     Active Substance: DOXORUBICIN HYDROCHLORIDE
     Indication: Liposarcoma
     Dosage: C1D1 AND D2, D3 ON 13/11/2023: 40 MG DOXORUBICIN AND IFOSFAMIDE 4900 MG
     Route: 042
     Dates: start: 20231113
  16. ADRIAMYCIN [Suspect]
     Active Substance: DOXORUBICIN HYDROCHLORIDE
     Indication: Liposarcoma
     Dosage: C2D1 AND D2, D3 ON 04/12/2023: 40 MG DOXORUBICIN AND IFOSFAMIDE 5300 MG
     Route: 042
     Dates: start: 20231204
  17. ADRIAMYCIN [Suspect]
     Active Substance: DOXORUBICIN HYDROCHLORIDE
     Indication: Liposarcoma
     Dosage: C3D1 AND D2, D3 ON 26/12/2023: 40 MG DOXORUBICIN AND IFOSFAMIDE 5300 MG
     Route: 042
     Dates: start: 20231226
  18. ADRIAMYCIN [Suspect]
     Active Substance: DOXORUBICIN HYDROCHLORIDE
     Indication: Liposarcoma
     Dosage: C4D1 AND D2, D3 ON 22/01/2024: 40 MG DOXORUBICIN AND IFOSFAMIDE 3900 MG
     Route: 042
     Dates: start: 20240122
  19. ADRIAMYCIN [Suspect]
     Active Substance: DOXORUBICIN HYDROCHLORIDE
     Indication: Liposarcoma
     Dosage: CYCLIC. LYOPHILISATE AND SOLUTION FOR PARENTERAL USE, INFUSION?DAILY DOSE: 40 MILLIGRAM
     Route: 042
     Dates: start: 20240212, end: 20240213
  20. ADRIAMYCIN [Suspect]
     Active Substance: DOXORUBICIN HYDROCHLORIDE
     Indication: Liposarcoma
     Dosage: CYCLIC. LYOPHILISATE AND SOLUTION FOR PARENTERAL USE, INFUSION.?C5D1 AND D2 (NO D3) ON 12/02/202...
     Route: 042
     Dates: start: 20240212
  21. VITAMIN B1 [Suspect]
     Active Substance: THIAMINE HYDROCHLORIDE
     Indication: Vitamin supplementation
     Dosage: ONE TABLET PER DAY ?DAILY DOSE: 500 MILLIGRAM
     Route: 048
     Dates: start: 20240212, end: 20240213
  22. VITAMIN B6 [Suspect]
     Active Substance: PYRIDOXINE HYDROCHLORIDE
     Indication: Vitamin supplementation
     Dosage: ONE TABLET PER DAY ?DAILY DOSE: 500 MILLIGRAM
     Route: 048
     Dates: start: 20240212, end: 20240213
  23. METHYLENE BLUE [Suspect]
     Active Substance: METHYLENE BLUE
     Indication: Encephalopathy
     Dosage: DAILY DOSE: 300 MILLIGRAM
     Route: 042
     Dates: start: 20240212, end: 20240213
  24. METHYLENE BLUE [Suspect]
     Active Substance: METHYLENE BLUE
     Indication: Encephalopathy
     Dosage: DAILY DOSE: 360 MILLIGRAM
     Route: 042
     Dates: start: 20240214, end: 20240214
  25. METHYLENE BLUE [Suspect]
     Active Substance: METHYLENE BLUE
     Indication: Encephalopathy
     Dosage: DAILY DOSE: 420 MILLIGRAM
     Route: 042
     Dates: start: 20240215, end: 20240216
  26. ONDANSETRON [Suspect]
     Active Substance: ONDANSETRON
     Indication: Prophylaxis of nausea and vomiting
     Route: 048
     Dates: start: 20240212, end: 20240213
  27. METOCLOPRAMIDE [Suspect]
     Active Substance: METOCLOPRAMIDE
     Indication: Prophylaxis of nausea and vomiting
     Route: 048
     Dates: start: 20240212, end: 20240213
  28. MESNA [Suspect]
     Active Substance: MESNA
     Indication: Prophylaxis
     Dosage: CYCLIC?DAILY DOSE: 6000 MILLIGRAM
     Route: 042
     Dates: start: 20240212, end: 20240213
  29. FUROSEMIDE [Suspect]
     Active Substance: FUROSEMIDE
     Indication: Fluid retention
     Dosage: DAILY DOSE: 20 MILLIGRAM
     Route: 048
     Dates: start: 20240212, end: 20240213
  30. CHLORPROMAZINE [Suspect]
     Active Substance: CHLORPROMAZINE
     Indication: Prophylaxis of nausea and vomiting
     Route: 048
     Dates: start: 20240212, end: 20240213
  31. KARDEGIC [Concomitant]
     Active Substance: ASPIRIN DL-LYSINE
     Dosage: POWDER FOR ORAL SOLUTION IN SACHET?DAILY DOSE: 1 DOSAGE FORM
     Route: 048
  32. BACTRIM [Concomitant]
     Active Substance: SULFAMETHOXAZOLE\TRIMETHOPRIM
     Dosage: 3 TIMES A WEEK
  33. CLOBAZAM [Concomitant]
     Active Substance: CLOBAZAM
     Route: 048
     Dates: start: 20240212, end: 20240212
  34. APREPITANT [Suspect]
     Active Substance: APREPITANT
  35. PEGFILGRASTIM [Suspect]
     Active Substance: PEGFILGRASTIM
     Dosage: 6 ML SC, ON DAY 4 OF THE CYCLE
     Route: 058
  36. METHYLENE BLUE [Suspect]
     Active Substance: METHYLENE BLUE
     Indication: Neurological symptom
     Dosage: 300 MG/D ON 12 AND 13/02?DAILY DOSE: 300 MILLIGRAM
     Dates: start: 20240212
  37. METHYLENE BLUE [Suspect]
     Active Substance: METHYLENE BLUE
     Indication: Neurological symptom
     Dosage: 300 MG/D ON 12 AND 13/02?DAILY DOSE: 300 MILLIGRAM
     Dates: start: 20240213
  38. METHYLENE BLUE [Suspect]
     Active Substance: METHYLENE BLUE
     Indication: Neurological symptom
     Dosage: 360 MG/D ON 14/02 (3X50 MG AND 3X70 MG)?DAILY DOSE: 360 MILLIGRAM
     Dates: start: 20240214
  39. METHYLENE BLUE [Suspect]
     Active Substance: METHYLENE BLUE
     Indication: Neurological symptom
     Dosage: 420 MG/D ON 15 AND 16/02, I.E. 70 MG/4H. ?DAILY DOSE: 420 MILLIGRAM
     Dates: start: 20240215
  40. METHYLENE BLUE [Suspect]
     Active Substance: METHYLENE BLUE
     Indication: Neurological symptom
     Dosage: 420 MG/D ON 15 AND 16/02, I.E. 70 MG/4H. ?DAILY DOSE: 420 MILLIGRAM
     Dates: start: 20240216
  41. METHYLENE BLUE [Suspect]
     Active Substance: METHYLENE BLUE
     Indication: Neurological symptom
     Dosage: 50MG IV EVERY 4 HOURS. WAS ADMINISTERED DURING EACH CYCLE FROM C2 ONWARDS?DAILY DOSE: 350 MILLIGRAM
     Route: 042

REACTIONS (2)
  - Haemolytic anaemia [Recovered/Resolved]
  - Off label use [Recovered/Resolved]

NARRATIVE: CASE EVENT DATE: 20240212
